FAERS Safety Report 14305319 (Version 1)
Quarter: 2017Q4

REPORT INFORMATION
  Report Type: Spontaneous
  Country: GB (occurrence: GB)
  Receive Date: 20171219
  Receipt Date: 20171219
  Transmission Date: 20180321
  Serious: Yes (Hospitalization, Other)
  Sender: FDA-Public Use
  Company Number: GB-OTSUKA-DJ201407919

PATIENT
  Age: 30 Year
  Sex: Male
  Weight: 150 kg

DRUGS (12)
  1. CLOZARIL [Suspect]
     Active Substance: CLOZAPINE
     Indication: SCHIZOPHRENIA
     Dosage: DOSE REDUCED TO 700MG
     Route: 048
     Dates: start: 20061012
  2. ATORVASTATIN [Suspect]
     Active Substance: ATORVASTATIN
     Indication: PRODUCT USED FOR UNKNOWN INDICATION
     Dosage: 10 MG, QD
     Route: 048
  3. CLOZARIL [Suspect]
     Active Substance: CLOZAPINE
     Indication: SCHIZOAFFECTIVE DISORDER
  4. FYBOGEL [Concomitant]
     Active Substance: PLANTAGO OVATA SEED
     Indication: CONSTIPATION
  5. VALPROATE SODIUM. [Concomitant]
     Active Substance: VALPROATE SODIUM
     Indication: AFFECTIVE DISORDER
     Dosage: 4000 MG, QD
     Route: 048
  6. ABILIFY [Suspect]
     Active Substance: ARIPIPRAZOLE
     Indication: PSYCHOTIC DISORDER
     Dosage: 10 MG, QD
     Route: 048
  7. OPC-14597IMD [Suspect]
     Active Substance: ARIPIPRAZOLE
     Indication: PSYCHOTIC DISORDER
     Dosage: 10 MG, UNK
     Route: 048
  8. LEVOTHYROXINE. [Suspect]
     Active Substance: LEVOTHYROXINE
     Indication: THYROID DISORDER
     Dosage: 75 MG, QD
     Route: 048
  9. BENZHEXOL [Concomitant]
     Active Substance: TRIHEXYPHENIDYL
     Indication: PRODUCT USED FOR UNKNOWN INDICATION
     Dosage: UNK
     Route: 065
  10. LANSOPRAZOLE. [Concomitant]
     Active Substance: LANSOPRAZOLE
     Indication: PRODUCT USED FOR UNKNOWN INDICATION
     Dosage: UNK
     Route: 065
  11. VALPROATE SODIUM. [Concomitant]
     Active Substance: VALPROATE SODIUM
     Indication: PRODUCT USED FOR UNKNOWN INDICATION
     Dosage: UNK
     Route: 065
  12. FYBOGEL [Concomitant]
     Active Substance: PLANTAGO OVATA SEED
     Indication: PRODUCT USED FOR UNKNOWN INDICATION
     Dosage: UNK
     Route: 065

REACTIONS (14)
  - Laryngitis [Recovered/Resolved]
  - Pharyngitis [Recovered/Resolved]
  - Oropharyngeal pain [Recovered/Resolved]
  - Rash generalised [Recovered/Resolved]
  - Conjunctivitis [Recovered/Resolved]
  - Tonsillitis [Recovered/Resolved]
  - Herpes simplex [Recovered/Resolved]
  - Oral candidiasis [Recovered/Resolved]
  - Oral pain [Recovered/Resolved]
  - White blood cell count increased [Unknown]
  - Neutrophil count increased [Unknown]
  - Blister [Recovered/Resolved]
  - Alanine aminotransferase increased [Unknown]
  - Off label use [Unknown]

NARRATIVE: CASE EVENT DATE: 20140710
